FAERS Safety Report 20719873 (Version 2)
Quarter: 2022Q2

REPORT INFORMATION
  Report Type: Spontaneous
  Country: US (occurrence: None)
  Receive Date: 20220418
  Receipt Date: 20220421
  Transmission Date: 20220720
  Serious: Yes (Other)
  Sender: FDA-Public Use
  Company Number: 2022A152431

PATIENT
  Age: 72 Year
  Sex: Female
  Weight: 79.4 kg

DRUGS (3)
  1. EVUSHELD [Suspect]
     Active Substance: CILGAVIMAB\TIXAGEVIMAB
     Indication: COVID-19 prophylaxis
     Dosage: 300.0MG UNKNOWN
     Route: 030
     Dates: start: 20220207
  2. PREDNISONE [Concomitant]
     Active Substance: PREDNISONE
     Dosage: FOR 5 DAYS
     Route: 048
  3. MOGAMULIZUMAB [Concomitant]
     Active Substance: MOGAMULIZUMAB
     Route: 065

REACTIONS (2)
  - Pruritus [Not Recovered/Not Resolved]
  - Cutaneous T-cell lymphoma [Unknown]

NARRATIVE: CASE EVENT DATE: 20220207
